FAERS Safety Report 7905915-5 (Version None)
Quarter: 2011Q4

REPORT INFORMATION
  Report Type: 
  Country: None (occurrence: None)
  Receive Date: 20111110
  Receipt Date: 20111031
  Transmission Date: 20120403
  Serious: Yes (Hospitalization)
  Sender: FDA-Public Use
  Company Number: BR-GENZYME-FABR-1002183

PATIENT
  Sex: Male

DRUGS (1)
  1. FABRAZYME [Suspect]
     Indication: FABRY'S DISEASE
     Dosage: UNK UNK, UNK
     Route: 042
     Dates: start: 20021029

REACTIONS (3)
  - ANGIOKERATOMA [None]
  - ANGINA PECTORIS [None]
  - CARDIAC HYPERTROPHY [None]
